FAERS Safety Report 25638298 (Version 1)
Quarter: 2025Q3

REPORT INFORMATION
  Report Type: Spontaneous
  Country: US (occurrence: None)
  Receive Date: 20250801
  Receipt Date: 20250801
  Transmission Date: 20251021
  Serious: Yes (Life-Threatening, Hospitalization, Other)
  Sender: FDA-CTU
  Company Number: None

PATIENT
  Age: 70 Year
  Sex: Female
  Weight: 65.77 kg

DRUGS (20)
  1. OHTUVAYRE [Suspect]
     Active Substance: ENSIFENTRINE
     Indication: Chronic obstructive pulmonary disease
     Dosage: OTHER QUANTITY : 2 NEBULIZER TREATMENTS;?FREQUENCY : DAILY;?OTHER ROUTE : NEBULIZER;?
     Route: 050
     Dates: start: 20250606, end: 20250624
  2. OHTUVAYRE [Suspect]
     Active Substance: ENSIFENTRINE
     Indication: Emphysema
  3. OHTUVAYRE [Suspect]
     Active Substance: ENSIFENTRINE
     Indication: Emphysema
  4. Pacemaker, de Fibrillator [Concomitant]
  5. ALBUTEROL SULFATE [Concomitant]
     Active Substance: ALBUTEROL SULFATE
  6. BREZTRI [Concomitant]
     Active Substance: BUDESONIDE\FORMOTEROL\GLYCOPYRROLATE
  7. DIAZEPAM [Concomitant]
     Active Substance: DIAZEPAM
  8. ELIQUIS [Concomitant]
     Active Substance: APIXABAN
  9. Entreoto [Concomitant]
  10. FUROSEMIDE [Concomitant]
     Active Substance: FUROSEMIDE
  11. IPRATROPIUM [Concomitant]
     Active Substance: IPRATROPIUM
  12. LEVOTHYROXINE [Concomitant]
     Active Substance: LEVOTHYROXINE
  13. LIDOCAINE [Concomitant]
     Active Substance: LIDOCAINE
  14. METOPROLOL [Concomitant]
     Active Substance: METOPROLOL
  15. OXYCODONE [Concomitant]
     Active Substance: OXYCODONE
  16. ROSUVASTATIN [Concomitant]
     Active Substance: ROSUVASTATIN
  17. MAGNESIUM [Concomitant]
     Active Substance: MAGNESIUM
  18. TYLENOL [Concomitant]
     Active Substance: ACETAMINOPHEN
  19. ALBUTEROL [Concomitant]
     Active Substance: ALBUTEROL
  20. ASPIRIN [Concomitant]
     Active Substance: ASPIRIN

REACTIONS (3)
  - Hypersensitivity [None]
  - Abnormal behaviour [None]
  - Mood altered [None]

NARRATIVE: CASE EVENT DATE: 20250624
